FAERS Safety Report 4975995-8 (Version None)
Quarter: 2006Q2

REPORT INFORMATION
  Report Type: 
  Country: None (occurrence: None)
  Receive Date: 20060418
  Receipt Date: 20050913
  Transmission Date: 20061013
  Serious: Yes (Hospitalization, Other)
  Sender: FDA-Public Use
  Company Number: US-MERCK-0509USA01858

PATIENT
  Age: 58 Year
  Sex: Female
  Weight: 88 kg

DRUGS (7)
  1. VIOXX [Suspect]
     Indication: ARTHRITIS
     Route: 048
     Dates: start: 20000101
  2. PREVACID [Concomitant]
     Route: 065
  3. PAXIL [Concomitant]
     Route: 065
  4. NEURONTIN [Concomitant]
     Route: 065
  5. KLOR-CON [Concomitant]
     Route: 065
  6. LASIX [Concomitant]
     Route: 065
  7. ZYPREXA [Concomitant]
     Route: 065

REACTIONS (11)
  - ANAEMIA [None]
  - CEREBROVASCULAR ACCIDENT [None]
  - CHEST PAIN [None]
  - CORONARY ARTERY DISEASE [None]
  - GASTRIC VARICES [None]
  - GASTRITIS [None]
  - GASTROINTESTINAL HAEMORRHAGE [None]
  - HEPATIC CIRRHOSIS [None]
  - MYOCARDIAL INFARCTION [None]
  - PANCREATITIS [None]
  - VARICES OESOPHAGEAL [None]
